FAERS Safety Report 8236412-8 (Version None)
Quarter: 2012Q1

REPORT INFORMATION
  Report Type: 
  Country: None (occurrence: None)
  Receive Date: 20120327
  Receipt Date: 20120322
  Transmission Date: 20120608
  Serious: No
  Sender: FDA-Public Use
  Company Number: US-PFIZER INC-2012075004

PATIENT
  Sex: Male

DRUGS (1)
  1. SUTENT [Suspect]
     Indication: RENAL CANCER
     Dosage: 37.5 MG, (12.5MG X 3PO DAILY)
     Route: 048
     Dates: start: 20120201, end: 20120318

REACTIONS (3)
  - INFLUENZA [None]
  - RENAL CANCER [None]
  - DISEASE PROGRESSION [None]
